FAERS Safety Report 9655544 (Version 3)
Quarter: 2013Q4

REPORT INFORMATION
  Report Type: Spontaneous
  Country: JP (occurrence: JP)
  Receive Date: 20131029
  Receipt Date: 20131227
  Transmission Date: 20140711
  Serious: Yes (Life-Threatening, Hospitalization)
  Sender: FDA-Public Use
  Company Number: JP-ELI_LILLY_AND_COMPANY-JP201310008583

PATIENT
  Age: 55 Year
  Sex: Male
  Weight: 94 kg

DRUGS (3)
  1. HUMALOG LISPRO [Suspect]
     Indication: DIABETES MELLITUS
     Dosage: 32 IU, UNKNOWN
     Route: 058
     Dates: end: 20130601
  2. HUMALOG LISPRO [Suspect]
     Dosage: 840 IU, QD
     Route: 058
     Dates: start: 20130602, end: 20130602
  3. MYSLEE [Concomitant]
     Route: 065

REACTIONS (3)
  - Suicide attempt [Recovered/Resolved]
  - Hypoglycaemic encephalopathy [Recovered/Resolved]
  - Intentional overdose [Recovered/Resolved]
